FAERS Safety Report 8348436-0 (Version None)
Quarter: 2012Q2

REPORT INFORMATION
  Report Type: 
  Country: None (occurrence: None)
  Receive Date: 20120509
  Receipt Date: 20120503
  Transmission Date: 20120825
  Serious: Yes (Hospitalization)
  Sender: FDA-Public Use
  Company Number: TR-TEVA-336674USA

PATIENT
  Sex: Male
  Weight: 77 kg

DRUGS (3)
  1. TREANDA [Suspect]
     Route: 042
     Dates: start: 20120209
  2. METFORMIN HCL [Concomitant]
     Indication: DIABETES MELLITUS
     Dosage: 170 MILLIGRAM;
     Dates: start: 20020101
  3. RITUXIMAB [Suspect]
     Dates: start: 20120209

REACTIONS (2)
  - ANAL ABSCESS [None]
  - NEUTROPENIA [None]
